FAERS Safety Report 12988494 (Version 1)
Quarter: 2016Q4

REPORT INFORMATION
  Report Type: Report from Study
  Country: US (occurrence: US)
  Receive Date: 20161130
  Receipt Date: 20161130
  Transmission Date: 20170207
  Serious: Yes (Hospitalization)
  Sender: FDA-Public Use
  Company Number: US-ACTELION-A-NJ2016-146261

PATIENT
  Age: 69 Year
  Sex: Female

DRUGS (23)
  1. DULOXETINE. [Concomitant]
     Active Substance: DULOXETINE
  2. CLOPIDOGREL [Concomitant]
     Active Substance: CLOPIDOGREL BISULFATE
  3. TRAZODONE [Concomitant]
     Active Substance: TRAZODONE HYDROCHLORIDE
  4. HYDROMORPHONE [Concomitant]
     Active Substance: HYDROMORPHONE
  5. ZAFIRLUKAST. [Concomitant]
     Active Substance: ZAFIRLUKAST
  6. GABAPENTIN. [Concomitant]
     Active Substance: GABAPENTIN
  7. ADCIRCA [Concomitant]
     Active Substance: TADALAFIL
  8. ORENITRAM [Concomitant]
     Active Substance: TREPROSTINIL
  9. MORPHINE [Concomitant]
     Active Substance: MORPHINE
  10. OPSUMIT [Suspect]
     Active Substance: MACITENTAN
     Indication: PULMONARY ARTERIAL HYPERTENSION
     Dosage: 10 MG, UNK
     Route: 048
  11. KCL [Concomitant]
     Active Substance: POTASSIUM CHLORIDE
  12. OMEPRAZOLE. [Concomitant]
     Active Substance: OMEPRAZOLE
  13. ONDANSETRON [Concomitant]
     Active Substance: ONDANSETRON
  14. FUROSEMIDE. [Concomitant]
     Active Substance: FUROSEMIDE
  15. HYDRALAZINE [Concomitant]
     Active Substance: HYDRALAZINE HYDROCHLORIDE
  16. ATORVASTATIN [Concomitant]
     Active Substance: ATORVASTATIN
  17. MOVANTIK [Concomitant]
     Active Substance: NALOXEGOL OXALATE
  18. ROPINIROLE. [Concomitant]
     Active Substance: ROPINIROLE
  19. MONTELUKAST [Concomitant]
     Active Substance: MONTELUKAST SODIUM
  20. LISINOPRIL. [Concomitant]
     Active Substance: LISINOPRIL
  21. LEVOCETIRIZINE [Concomitant]
     Active Substance: LEVOCETIRIZINE
  22. SPIRIVA [Concomitant]
     Active Substance: TIOTROPIUM BROMIDE MONOHYDRATE
  23. ALPRAZOLAM. [Concomitant]
     Active Substance: ALPRAZOLAM

REACTIONS (2)
  - Biopsy [Unknown]
  - Anaesthetic complication [Unknown]
